FAERS Safety Report 25205080 (Version 1)
Quarter: 2025Q2

REPORT INFORMATION
  Report Type: Report from Study
  Country: DE (occurrence: DE)
  Receive Date: 20250416
  Receipt Date: 20250416
  Transmission Date: 20250717
  Serious: Yes (Hospitalization, Other)
  Sender: ABBVIE
  Company Number: DE-ABBVIE-6227861

PATIENT
  Age: 70 Year
  Sex: Female

DRUGS (1)
  1. SKYRIZI [Suspect]
     Active Substance: RISANKIZUMAB-RZAA
     Indication: Crohn^s disease
     Route: 058
     Dates: start: 20230926

REACTIONS (3)
  - Adenoma benign [Recovered/Resolved]
  - Short-bowel syndrome [Not Recovered/Not Resolved]
  - Colectomy [Recovered/Resolved]

NARRATIVE: CASE EVENT DATE: 20240619
